FAERS Safety Report 25772872 (Version 5)
Quarter: 2025Q4

REPORT INFORMATION
  Report Type: Report from Study
  Country: CA (occurrence: CA)
  Receive Date: 20250908
  Receipt Date: 20251125
  Transmission Date: 20260118
  Serious: Yes (Hospitalization, Other)
  Sender: TAKEDA
  Company Number: CA-TAKEDA-2025TUS077604

PATIENT
  Age: 89 Year
  Sex: Female

DRUGS (2)
  1. VEDOLIZUMAB [Suspect]
     Active Substance: VEDOLIZUMAB
     Indication: Colitis ulcerative
     Dosage: 300 MILLIGRAM
  2. VEDOLIZUMAB [Suspect]
     Active Substance: VEDOLIZUMAB
     Dosage: 300 MILLIGRAM

REACTIONS (12)
  - Retinal haemorrhage [Unknown]
  - Intraocular pressure increased [Unknown]
  - Blindness unilateral [Unknown]
  - Retinal detachment [Recovering/Resolving]
  - Mobility decreased [Recovering/Resolving]
  - Psychotic disorder [Recovering/Resolving]
  - Asthenia [Unknown]
  - Blood pressure increased [Recovering/Resolving]
  - Conjunctival hyperaemia [Unknown]
  - Diarrhoea [Unknown]
  - Anxiety [Recovering/Resolving]
  - Lactose intolerance [Unknown]
